FAERS Safety Report 7972839-7 (Version None)
Quarter: 2011Q4

REPORT INFORMATION
  Report Type: 
  Country: None (occurrence: None)
  Receive Date: 20111213
  Receipt Date: 20111129
  Transmission Date: 20120403
  Serious: Yes (Hospitalization)
  Sender: FDA-Public Use
  Company Number: FR-ROCHE-1013699

PATIENT
  Age: 23 Year
  Sex: Male

DRUGS (2)
  1. VEMURAFENIB [Suspect]
     Indication: METASTATIC MALIGNANT MELANOMA
     Route: 048
     Dates: start: 20110826
  2. KEPPRA [Concomitant]
     Indication: METASTATIC MALIGNANT MELANOMA
     Dosage: 250 MG TWICE DAILY
     Route: 048
     Dates: start: 20110817

REACTIONS (1)
  - RENAL FAILURE ACUTE [None]
